FAERS Safety Report 5403531-0 (Version None)
Quarter: 2007Q3

REPORT INFORMATION
  Report Type: 
  Country: None (occurrence: None)
  Receive Date: 20070713
  Receipt Date: 20070518
  Transmission Date: 20080115
  Serious: Yes (Hospitalization)
  Sender: FDA-Public Use
  Company Number: US-JNJFOC-20070400513

PATIENT
  Age: 44 Year
  Sex: Female
  Weight: 115.6672 kg

DRUGS (8)
  1. ORTHO EVRA [Suspect]
     Indication: CONTRACEPTION
     Dosage: TRANSDERMAL
     Route: 062
     Dates: start: 20040401, end: 20050407
  2. WELLBUTRIN [Concomitant]
  3. EFFEXOR [Concomitant]
  4. LORAZEPAM [Concomitant]
  5. OXYCONTIN [Concomitant]
  6. HYDROCODONE (HYDROCODONE) [Concomitant]
  7. SOMA [Concomitant]
  8. SEROQUEL [Concomitant]

REACTIONS (2)
  - DEEP VEIN THROMBOSIS [None]
  - PULMONARY EMBOLISM [None]
